FAERS Safety Report 12894466 (Version 3)
Quarter: 2016Q4

REPORT INFORMATION
  Report Type: Spontaneous
  Country: SK (occurrence: SK)
  Receive Date: 20161028
  Receipt Date: 20161215
  Transmission Date: 20170207
  Serious: Yes (Disabling, Other)
  Sender: FDA-Public Use
  Company Number: SK-JNJFOC-20161024016

PATIENT
  Age: 70 Year
  Sex: Male
  Weight: 94.97 kg

DRUGS (1)
  1. XARELTO [Suspect]
     Active Substance: RIVAROXABAN
     Indication: ATRIAL FIBRILLATION
     Route: 048
     Dates: start: 20150429, end: 201606

REACTIONS (5)
  - Dizziness [Unknown]
  - Hypertension [Unknown]
  - Hemiparesis [Unknown]
  - Ischaemic stroke [Recovered/Resolved with Sequelae]
  - Facial paralysis [Unknown]

NARRATIVE: CASE EVENT DATE: 201609
